FAERS Safety Report 23056857 (Version 1)
Quarter: 2023Q4

REPORT INFORMATION
  Report Type: Spontaneous
  Country: US (occurrence: US)
  Receive Date: 20231012
  Receipt Date: 20231012
  Transmission Date: 20240110
  Serious: No
  Sender: FDA-Public Use
  Company Number: US-ChurchDwight-2023-CDW-01572

PATIENT
  Age: 28 Year
  Sex: Female

DRUGS (1)
  1. ZICAM EXTREME CONGESTION RELIEF [Suspect]
     Active Substance: OXYMETAZOLINE HYDROCHLORIDE
     Indication: Nasopharyngitis
     Dosage: ONE TO TWO SPRAYS IN NOSE
     Route: 045
     Dates: start: 20230929, end: 20231002

REACTIONS (6)
  - Ageusia [Recovering/Resolving]
  - Anosmia [Not Recovered/Not Resolved]
  - Nasal discomfort [Recovering/Resolving]
  - Oral discomfort [Recovering/Resolving]
  - Gingival discomfort [Recovering/Resolving]
  - Skin burning sensation [Recovering/Resolving]

NARRATIVE: CASE EVENT DATE: 20230929
